FAERS Safety Report 5284092-6 (Version None)
Quarter: 2007Q1

REPORT INFORMATION
  Report Type: 
  Country: None (occurrence: None)
  Receive Date: 20070327
  Receipt Date: 20070320
  Transmission Date: 20070707
  Serious: Yes (Life-Threatening, Hospitalization)
  Sender: FDA-Public Use
  Company Number: 236442

PATIENT
  Age: 64 Year
  Sex: Male

DRUGS (12)
  1. AVASTIN [Suspect]
     Indication: COLON CANCER METASTATIC
     Dosage: 454 MG
     Dates: start: 20061018
  2. LIPITOR [Concomitant]
  3. SPIRONOLACTONE [Concomitant]
  4. INDERAL LA (PROPANOLOL HYDROCHLORIDE) [Concomitant]
  5. IRON (IRON NOS) [Concomitant]
  6. ROBITUSSIN (GUAIFENESIN) [Concomitant]
  7. POTASSIUM CHLORIDE [Concomitant]
  8. LASIX [Concomitant]
  9. PRILOSEC [Concomitant]
  10. FLOMAX [Concomitant]
  11. NASACORT [Concomitant]
  12. ZYRTEC [Concomitant]

REACTIONS (3)
  - HAEMATEMESIS [None]
  - HAEMATOCHEZIA [None]
  - VARICES OESOPHAGEAL [None]
